FAERS Safety Report 8704551 (Version 2)
Quarter: 2012Q4

REPORT INFORMATION
  Report Type: 
  Country: CN (occurrence: CN)
  Receive Date: 20120803
  Receipt Date: 20120830
  Transmission Date: 20130627
  Serious: Yes (Hospitalization, Disabling)
  Sender: FDA-Public Use
  Company Number: PHHY2012CN060461

PATIENT
  Age: 39 Year
  Sex: Male

DRUGS (1)
  1. SEBIVO [Suspect]
     Indication: HEPATITIS B
     Dosage: 600 mg, QD
     Route: 048
     Dates: start: 201206, end: 20120712

REACTIONS (5)
  - Coma hepatic [Unknown]
  - Muscle injury [Unknown]
  - Blood creatine phosphokinase increased [Unknown]
  - Myoglobin blood increased [Unknown]
  - Blood lactic acid increased [Unknown]
